FAERS Safety Report 8854720 (Version 2)
Quarter: 2012Q4

REPORT INFORMATION
  Report Type: 
  Country: US (occurrence: US)
  Receive Date: 20121023
  Receipt Date: 20121206
  Transmission Date: 20130627
  Serious: Yes (Other)
  Sender: FDA-Public Use
  Company Number: US-PFIZER INC-2012263293

PATIENT
  Age: 54 Year
  Sex: Female
  Weight: 73.5 kg

DRUGS (6)
  1. TIKOSYN [Suspect]
     Indication: ATRIAL FIBRILLATION
     Dosage: 500 ug, 2x/day
     Route: 048
     Dates: start: 20121016, end: 20121017
  2. TIKOSYN [Suspect]
     Dosage: 250 ug, 2x/day
     Route: 048
     Dates: start: 20121017
  3. COUMADINE [Concomitant]
     Indication: ANTICACHECTIC THERAPY
     Dosage: UNK
  4. LOSARTAN [Concomitant]
     Dosage: UNK
  5. NORVASC [Concomitant]
     Dosage: UNK
  6. LOPRESSOR [Concomitant]
     Dosage: UNK

REACTIONS (2)
  - Electrocardiogram QT prolonged [Unknown]
  - Drug ineffective [Unknown]
